FAERS Safety Report 8406438-X (Version None)
Quarter: 2012Q2

REPORT INFORMATION
  Report Type: 
  Country: None (occurrence: None)
  Receive Date: 20120604
  Receipt Date: 20120525
  Transmission Date: 20120825
  Serious: Yes (Other)
  Sender: FDA-Public Use
  Company Number: US-JNJFOC-20120412246

PATIENT

DRUGS (2)
  1. XARELTO [Suspect]
     Indication: ORTHOPEDIC PROCEDURE
     Route: 048
  2. TORADOL [Concomitant]
     Indication: PROCEDURAL PAIN

REACTIONS (4)
  - POST PROCEDURAL HAEMORRHAGE [None]
  - JOINT SWELLING [None]
  - OEDEMA PERIPHERAL [None]
  - HAEMATOMA [None]
